FAERS Safety Report 7424802-2 (Version None)
Quarter: 2011Q2

REPORT INFORMATION
  Report Type: 
  Country: None (occurrence: None)
  Receive Date: 20110419
  Receipt Date: 20110415
  Transmission Date: 20111010
  Serious: Yes (Other)
  Sender: FDA-Public Use
  Company Number: IL-ABBOTT-10P-082-0688468-00

PATIENT
  Age: 23 Year
  Sex: Female
  Weight: 60 kg

DRUGS (15)
  1. VALPROIC ACID [Suspect]
     Indication: CONVULSION
     Dosage: 250 PLUS 125 MG/DAY
  2. APO-LAMOTRIGINE [Concomitant]
     Dosage: 100 MG PER FEEDING TUBE
     Route: 050
  3. APO-LAMOTRIGINE [Concomitant]
     Indication: PRODUCT USED FOR UNKNOWN INDICATION
     Dosage: 250 MG DAILY
  4. ETOMIDATE [Concomitant]
     Indication: INDUCTION OF ANAESTHESIA
  5. CISATRACURIUM [Concomitant]
     Dosage: 0.08 MCG/KG/MIN
  6. PROPOFOL [Concomitant]
     Indication: PROPHYLAXIS
  7. LEVETIRACETAM [Concomitant]
     Indication: PRODUCT USED FOR UNKNOWN INDICATION
  8. LEVETIRACETAM [Concomitant]
     Dosage: 750 MG PER FEEDING TUBE
     Route: 050
  9. CISATRACURIUM [Concomitant]
     Indication: PARALYSIS
     Dosage: 0.08 MCG/KG/MIN
  10. VALPROIC ACID [Suspect]
     Indication: PERIPHERAL SENSORY NEUROPATHY
     Dosage: 10 MG/KG/DAY
  11. PROPOFOL [Concomitant]
     Indication: CEREBRAL DISORDER
     Dosage: 2-4 MG/KG/HR
  12. FENTANYL [Concomitant]
     Indication: INDUCTION OF ANAESTHESIA
     Dosage: 2 MCG/KG
  13. CISATRACURIUM [Concomitant]
     Indication: INDUCTION OF ANAESTHESIA
  14. REMIFENTANIL [Concomitant]
     Indication: CEREBRAL DISORDER
     Dosage: 0.125-0.3 MCG/KG/MIN
  15. REMIFENTANIL [Concomitant]
     Indication: PROPHYLAXIS

REACTIONS (7)
  - ACUTE HEPATIC FAILURE [None]
  - CARDIAC FAILURE ACUTE [None]
  - ENCEPHALOPATHY [None]
  - MENINGITIS [None]
  - HYPOTENSION [None]
  - PNEUMONIA [None]
  - RENAL FAILURE ACUTE [None]
